FAERS Safety Report 20726015 (Version 1)
Quarter: 2022Q2

REPORT INFORMATION
  Report Type: Spontaneous
  Country: US (occurrence: US)
  Receive Date: 20220419
  Receipt Date: 20220419
  Transmission Date: 20220721
  Serious: No
  Sender: FDA-Public Use
  Company Number: US-SANOFI-01062545

PATIENT
  Age: 9 Month
  Sex: Male

DRUGS (1)
  1. PHISOHEX [Suspect]
     Active Substance: HEXACHLOROPHENE

REACTIONS (1)
  - Expired product administered [Unknown]
